FAERS Safety Report 7945143-0 (Version None)
Quarter: 2011Q4

REPORT INFORMATION
  Report Type: 
  Country: None (occurrence: None)
  Receive Date: 20111129
  Receipt Date: 20111129
  Transmission Date: 20120403
  Serious: Yes (Other)
  Sender: FDA-Public Use
  Company Number: None

PATIENT
  Sex: Female
  Weight: 79.832 kg

DRUGS (1)
  1. LEVAQUIN -GENERIC- [Suspect]
     Indication: SINUSITIS
     Dosage: 500MG
     Route: 048
     Dates: start: 20111123, end: 20111126

REACTIONS (8)
  - PAIN [None]
  - FEAR [None]
  - BURNING SENSATION [None]
  - HYPOAESTHESIA [None]
  - PAIN IN EXTREMITY [None]
  - TENDON PAIN [None]
  - PARAESTHESIA [None]
  - MENTAL STATUS CHANGES [None]
